FAERS Safety Report 7656437-0 (Version None)
Quarter: 2011Q3

REPORT INFORMATION
  Report Type: 
  Country: None (occurrence: None)
  Receive Date: 20110804
  Receipt Date: 20110801
  Transmission Date: 20111222
  Serious: Yes (Other)
  Sender: FDA-Public Use
  Company Number: US-ABBOTT-11P-163-0843180-00

PATIENT
  Sex: Male
  Weight: 102.15 kg

DRUGS (7)
  1. PRAVASTATIN [Concomitant]
     Indication: HYPERLIPIDAEMIA
  2. HUMIRA [Suspect]
     Indication: ANKYLOSING SPONDYLITIS
     Dates: start: 20090901, end: 20110601
  3. CHANTIX [Concomitant]
     Indication: EX-TOBACCO USER
  4. MICARDIS [Concomitant]
     Indication: HYPERTENSION
  5. DESERYL [Concomitant]
     Indication: SLEEP DISORDER THERAPY
  6. INDOMETHACIN [Concomitant]
     Indication: INFLAMMATION
  7. METHOTREXATE [Concomitant]
     Indication: ANKYLOSING SPONDYLITIS

REACTIONS (2)
  - ANORECTAL DISCOMFORT [None]
  - BOWEN'S DISEASE [None]
